FAERS Safety Report 18562196 (Version 1)
Quarter: 2020Q4

REPORT INFORMATION
  Report Type: Spontaneous
  Country: PL (occurrence: PL)
  Receive Date: 20201130
  Receipt Date: 20201130
  Transmission Date: 20210114
  Serious: Yes (Other)
  Sender: FDA-Public Use
  Company Number: PL-GILEAD-2020-0506082

PATIENT
  Age: 68 Year
  Sex: Male

DRUGS (7)
  1. OLANZAPINE. [Concomitant]
     Active Substance: OLANZAPINE
  2. OXYGEN. [Concomitant]
     Active Substance: OXYGEN
  3. PAROXETINE. [Concomitant]
     Active Substance: PAROXETINE
  4. TOCILIZUMAB. [Concomitant]
     Active Substance: TOCILIZUMAB
  5. VEKLURY [Suspect]
     Active Substance: REMDESIVIR
     Dosage: 100 MG 2-5
     Route: 042
  6. VEKLURY [Suspect]
     Active Substance: REMDESIVIR
     Indication: COVID-19
     Dosage: 200 MG
     Route: 042
  7. CLONAZEPAM. [Concomitant]
     Active Substance: CLONAZEPAM

REACTIONS (3)
  - General physical health deterioration [Unknown]
  - Inflammatory marker increased [Unknown]
  - Oxygen saturation decreased [Unknown]
